FAERS Safety Report 18817619 (Version 1)
Quarter: 2021Q1

REPORT INFORMATION
  Report Type: Other
  Country: ZA (occurrence: ZA)
  Receive Date: 20210201
  Receipt Date: 20210201
  Transmission Date: 20210419
  Serious: Yes (Other)
  Sender: FDA-Public Use
  Company Number: ZA-ROCHE-1820316

PATIENT
  Age: 42 Year
  Sex: Male

DRUGS (14)
  1. LUCENTIS [Suspect]
     Active Substance: RANIBIZUMAB
     Dosage: LEFT EYE (CYCLE 3)
     Route: 031
     Dates: start: 20160727
  2. LUCENTIS [Suspect]
     Active Substance: RANIBIZUMAB
     Dosage: LEFT EYE (CYCLE 3)
     Route: 031
     Dates: start: 20160615
  3. LUCENTIS [Suspect]
     Active Substance: RANIBIZUMAB
     Dosage: LEFT EYE (CYCLE 2)
     Route: 031
     Dates: start: 20160511
  4. LUCENTIS [Suspect]
     Active Substance: RANIBIZUMAB
     Route: 031
     Dates: start: 20160831, end: 20160831
  5. LUCENTIS [Suspect]
     Active Substance: RANIBIZUMAB
     Route: 031
     Dates: start: 20150708
  6. LUCENTIS [Suspect]
     Active Substance: RANIBIZUMAB
     Indication: DIABETIC RETINAL OEDEMA
     Dosage: LEFT EYE (CYCLE 1)
     Route: 031
     Dates: start: 20151125
  7. LUCENTIS [Suspect]
     Active Substance: RANIBIZUMAB
     Dosage: LEFT EYE (CYCLE 1)
     Route: 031
     Dates: start: 20160127
  8. LUCENTIS [Suspect]
     Active Substance: RANIBIZUMAB
     Route: 031
  9. OZURDEX [Suspect]
     Active Substance: DEXAMETHASONE
     Route: 065
     Dates: start: 201710
  10. LUCENTIS [Suspect]
     Active Substance: RANIBIZUMAB
     Route: 031
     Dates: start: 20160421
  11. LUCENTIS [Suspect]
     Active Substance: RANIBIZUMAB
     Route: 031
     Dates: start: 201804
  12. OZURDEX [Suspect]
     Active Substance: DEXAMETHASONE
     Indication: PRODUCT USED FOR UNKNOWN INDICATION
     Route: 065
     Dates: start: 201611
  13. LUCENTIS [Suspect]
     Active Substance: RANIBIZUMAB
     Indication: NEOVASCULAR AGE-RELATED MACULAR DEGENERATION
     Dosage: LEFT EYE, (CYCLE 1)
     Route: 031
     Dates: start: 20150930
  14. LUCENTIS [Suspect]
     Active Substance: RANIBIZUMAB
     Dosage: LEFT EYE (CYCLE 2)
     Route: 031
     Dates: start: 20160323

REACTIONS (5)
  - Visual acuity reduced [Unknown]
  - Retinal oedema [Unknown]
  - Intraocular pressure increased [Unknown]
  - Therapy non-responder [Unknown]
  - Retinal thickening [Unknown]
